FAERS Safety Report 8931418 (Version 1)
Quarter: 2012Q4

REPORT INFORMATION
  Report Type: 
  Country: US (occurrence: US)
  Receive Date: 20121128
  Receipt Date: 20121128
  Transmission Date: 20130627
  Serious: No
  Sender: FDA-Public Use
  Company Number: US-TARO-2012P1052857

PATIENT
  Age: 79 Year
  Sex: Female
  Weight: 74.84 kg

DRUGS (7)
  1. TRIAMCINOLONE ACETONIDE [Suspect]
     Dates: start: 20120726, end: 20120727
  2. TRIAMCINOLONE ACETONIDE [Suspect]
     Dates: start: 20120728, end: 20120729
  3. LOSARTAN [Concomitant]
  4. LEVOTHYROXINE [Concomitant]
  5. METOPROLOL [Concomitant]
  6. LOVASTATIN [Concomitant]
  7. SPIRONOLACTONE [Concomitant]

REACTIONS (3)
  - Drug ineffective [Recovering/Resolving]
  - Gingival pain [Recovering/Resolving]
  - Gingival blister [Recovering/Resolving]
